FAERS Safety Report 7649808-X (Version None)
Quarter: 2011Q3

REPORT INFORMATION
  Report Type: 
  Country: None (occurrence: None)
  Receive Date: 20110802
  Receipt Date: 20110725
  Transmission Date: 20111222
  Serious: Yes (Life-Threatening, Hospitalization)
  Sender: FDA-Public Use
  Company Number: US-CELGENEUS-163-21880-11071853

PATIENT
  Sex: Male

DRUGS (9)
  1. ASPIRIN [Concomitant]
     Dosage: 81 MILLIGRAM
     Route: 065
  2. METOPROLOL TARTRATE [Concomitant]
     Route: 065
  3. DEXAMETHASONE [Concomitant]
     Route: 065
  4. ONDANSETRON [Concomitant]
     Route: 065
  5. FISH OIL [Concomitant]
     Route: 065
  6. VICODIN [Concomitant]
     Route: 065
  7. REVLIMID [Suspect]
     Indication: MULTIPLE MYELOMA
     Dosage: 15 MILLIGRAM
     Route: 048
     Dates: start: 20101201
  8. METOCLOPRAMIDE [Concomitant]
     Route: 065
  9. FOLIC ACID [Concomitant]
     Route: 065

REACTIONS (4)
  - DISEASE PROGRESSION [None]
  - MULTIPLE MYELOMA [None]
  - RENAL FAILURE [None]
  - NEUROPATHY PERIPHERAL [None]
